FAERS Safety Report 9125904 (Version 1)
Quarter: 2013Q1

REPORT INFORMATION
  Report Type: Spontaneous
  Country: US (occurrence: US)
  Receive Date: 20130117
  Receipt Date: 20130117
  Transmission Date: 20140127
  Serious: Yes (Other)
  Sender: FDA-Public Use
  Company Number: US-JNJFOC-20130105375

PATIENT
  Age: 68 Year
  Sex: Male
  Weight: 72.58 kg

DRUGS (3)
  1. XARELTO [Suspect]
     Indication: THROMBOSIS
     Route: 048
     Dates: start: 201202
  2. XARELTO [Suspect]
     Indication: CARDIAC VALVE DISEASE
     Route: 048
     Dates: start: 201202
  3. MICARDIS [Concomitant]
     Indication: BLOOD PRESSURE
     Route: 048

REACTIONS (3)
  - Mass [Not Recovered/Not Resolved]
  - Otorrhoea [Recovered/Resolved]
  - Pruritus [Recovered/Resolved]
